FAERS Safety Report 12293518 (Version 2)
Quarter: 2016Q2

REPORT INFORMATION
  Report Type: Report from Study
  Country: GR (occurrence: GR)
  Receive Date: 20160421
  Receipt Date: 20160427
  Transmission Date: 20160815
  Serious: Yes (Death)
  Sender: FDA-Public Use
  Company Number: GR-ABBVIE-16P-066-1608950-00

PATIENT
  Sex: Male
  Weight: 85 kg

DRUGS (1)
  1. DUODOPA [Suspect]
     Active Substance: CARBIDOPA\LEVODOPA
     Indication: PARKINSON^S DISEASE
     Dosage: MORNING DOSE: 9.5ML, CONTINUOUS RATE: 4ML/H, EXTRA DOSE: 1.5ML
     Route: 050
     Dates: start: 200906, end: 20160414

REACTIONS (2)
  - Pulmonary oedema [Fatal]
  - Pneumonia aspiration [Fatal]
